FAERS Safety Report 23369713 (Version 2)
Quarter: 2024Q1

REPORT INFORMATION
  Report Type: Spontaneous
  Country: GB (occurrence: GB)
  Receive Date: 20240105
  Receipt Date: 20240113
  Transmission Date: 20240409
  Serious: Yes (Death, Hospitalization, Other)
  Sender: FDA-Public Use
  Company Number: GB-AUROBINDO-AUR-APL-2017-40495

PATIENT

DRUGS (7)
  1. PREGABALIN [Suspect]
     Active Substance: PREGABALIN
     Indication: Product used for unknown indication
     Dosage: UNK
     Route: 065
  2. PREGABALIN [Suspect]
     Active Substance: PREGABALIN
     Indication: Product used for unknown indication
     Dosage: 2100 MG, TOTAL (300MG 2/DAY)
     Route: 065
     Dates: start: 2016, end: 2016
  3. TRAMADOL [Suspect]
     Active Substance: TRAMADOL\TRAMADOL HYDROCHLORIDE
     Indication: Pain
     Dosage: UNK
     Route: 065
     Dates: end: 2015
  4. MIRTAZAPINE [Concomitant]
     Active Substance: MIRTAZAPINE
     Indication: Depression
     Dosage: UNK
     Route: 065
  5. TRAMADOL HYDROCHLORIDE [Suspect]
     Active Substance: TRAMADOL HYDROCHLORIDE
     Indication: Pain
     Dosage: UNK
     Route: 065
     Dates: start: 2015
  6. TRAMADOL HYDROCHLORIDE [Suspect]
     Active Substance: TRAMADOL HYDROCHLORIDE
     Indication: Pain
     Dosage: 1500 MG, TOTAL, ONCE
     Route: 065
     Dates: start: 2016, end: 2016
  7. LANSOPRAZOLE [Concomitant]
     Active Substance: LANSOPRAZOLE
     Indication: Product used for unknown indication
     Dosage: UNK
     Route: 065
     Dates: end: 2016

REACTIONS (16)
  - Myocardial infarction [Fatal]
  - Fatigue [Fatal]
  - Intentional overdose [Fatal]
  - Circulatory collapse [Fatal]
  - Seizure [Fatal]
  - Heart rate irregular [Fatal]
  - Malaise [Fatal]
  - Toxicity to various agents [Fatal]
  - Pallor [Fatal]
  - Diarrhoea [Fatal]
  - Slow speech [Fatal]
  - Drug abuse [Fatal]
  - Prescription drug used without a prescription [Fatal]
  - Somnolence [Fatal]
  - Loss of consciousness [Fatal]
  - Nervousness [Fatal]

NARRATIVE: CASE EVENT DATE: 20150101
